FAERS Safety Report 16194448 (Version 3)
Quarter: 2019Q2

REPORT INFORMATION
  Report Type: Spontaneous
  Country: US (occurrence: US)
  Receive Date: 20190414
  Receipt Date: 20190606
  Transmission Date: 20190711
  Serious: No
  Sender: FDA-Public Use
  Company Number: US-TEVA-2019-US-1038317

PATIENT
  Age: 56 Year
  Sex: Female

DRUGS (2)
  1. AJOVY [Suspect]
     Active Substance: FREMANEZUMAB-VFRM
     Indication: MIGRAINE
     Dosage: MONTHLY INJECTION
  2. FEMRING [Concomitant]
     Active Substance: ESTRADIOL ACETATE
     Dosage: .1 MILLIGRAM DAILY;

REACTIONS (8)
  - Nipple pain [Recovered/Resolved]
  - Libido increased [Recovered/Resolved]
  - Mood swings [Not Recovered/Not Resolved]
  - Vaginal haemorrhage [Recovered/Resolved]
  - Sexual dysfunction [Recovered/Resolved]
  - Dyspareunia [Recovered/Resolved]
  - Anger [Not Recovered/Not Resolved]
  - Drug ineffective [Unknown]

NARRATIVE: CASE EVENT DATE: 20190131
